FAERS Safety Report 13320275 (Version 11)
Quarter: 2018Q1

REPORT INFORMATION
  Report Type: Spontaneous
  Country: JP (occurrence: JP)
  Receive Date: 20170310
  Receipt Date: 20180319
  Transmission Date: 20180508
  Serious: Yes (Hospitalization, Other)
  Sender: FDA-Public Use
  Company Number: JP-009507513-1703JPN000422J

PATIENT
  Age: 85 Year
  Sex: Female
  Weight: 50.5 kg

DRUGS (8)
  1. ZITHROMAC [Concomitant]
     Active Substance: AZITHROMYCIN DIHYDRATE
     Dosage: UNK
     Route: 065
  2. FINIBAX [Concomitant]
     Active Substance: DORIPENEM MONOHYDRATE
     Dosage: UNK
     Route: 065
  3. REBETOL [Suspect]
     Active Substance: RIBAVIRIN
     Indication: CHRONIC HEPATITIS C
     Dosage: 600 MG, UNK
     Route: 048
     Dates: start: 20170111, end: 20170303
  4. REBETOL [Suspect]
     Active Substance: RIBAVIRIN
     Dosage: UNK
     Route: 048
  5. SOVALDI [Suspect]
     Active Substance: SOFOSBUVIR
     Indication: CHRONIC HEPATITIS C
     Dosage: 1 DF, UNK
     Route: 048
     Dates: start: 20170111, end: 20170303
  6. MICAMLO [Concomitant]
     Active Substance: AMLODIPINE BESYLATE\TELMISARTAN
     Dosage: 1 DF, UNK
     Route: 048
  7. CANCIDAS [Concomitant]
     Active Substance: CASPOFUNGIN ACETATE
     Dosage: UNK
     Route: 041
  8. URSO [Concomitant]
     Active Substance: URSODIOL
     Dosage: 6 DF, UNK
     Route: 048

REACTIONS (5)
  - Pneumonia [Recovered/Resolved]
  - Acute respiratory distress syndrome [Recovered/Resolved]
  - Acute kidney injury [Unknown]
  - Pyrexia [Recovered/Resolved]
  - Disseminated intravascular coagulation [Recovered/Resolved]

NARRATIVE: CASE EVENT DATE: 201702
